FAERS Safety Report 5313087-9 (Version None)
Quarter: 2007Q2

REPORT INFORMATION
  Report Type: 
  Country: None (occurrence: None)
  Receive Date: 20070430
  Receipt Date: 20070417
  Transmission Date: 20071010
  Serious: Yes (Hospitalization, Other)
  Sender: FDA-Public Use
  Company Number: US-PFIZER INC-2007031451

PATIENT
  Sex: Male

DRUGS (2)
  1. BEXTRA [Suspect]
     Dates: start: 20040317, end: 20040417
  2. VIOXX [Suspect]
     Route: 048
     Dates: start: 20010201

REACTIONS (1)
  - CEREBROVASCULAR ACCIDENT [None]
